FAERS Safety Report 9206760 (Version 9)
Quarter: 2013Q4

REPORT INFORMATION
  Report Type: Spontaneous
  Country: US (occurrence: US)
  Receive Date: 20130403
  Receipt Date: 20131017
  Transmission Date: 20140711
  Serious: Yes (Hospitalization, Other)
  Sender: FDA-Public Use
  Company Number: US-VERTEX PHARMACEUTICALS INC.-2013-004342

PATIENT
  Age: 67 Year
  Sex: Male
  Weight: 104 kg

DRUGS (11)
  1. INCIVEK [Suspect]
     Indication: HEPATITIS C
     Dosage: 750 MG, TID
     Route: 048
     Dates: start: 20130329, end: 201306
  2. RIBAPAK [Suspect]
     Indication: HEPATITIS C
     Dosage: 600 MG, BID
     Route: 048
     Dates: start: 20130329
  3. RIBAPAK [Suspect]
     Dosage: 600 MG, QD
     Route: 048
     Dates: start: 201305, end: 201308
  4. PEGASYS [Suspect]
     Indication: HEPATITIS C
     Dosage: 180 ?G, QW
     Route: 058
     Dates: start: 20130329, end: 201308
  5. AMLODIPINE [Concomitant]
     Indication: HYPERTENSION
     Dosage: UNK, QD
     Route: 048
  6. FINASTERIDE [Concomitant]
     Dosage: 5 MG, QD
  7. VESICARE [Concomitant]
     Dosage: 5 MG, QD
  8. HYDROCHLOROTHIAZID [Concomitant]
     Indication: FLUID RETENTION
     Dosage: 25 MG, QD
  9. HYDROCHLOROTHIAZID [Concomitant]
     Indication: HYPERTENSION
  10. ENALAPRIL [Concomitant]
     Indication: HYPERTENSION
  11. MOBIC [Concomitant]

REACTIONS (12)
  - Anaemia [Unknown]
  - Dyspnoea [Not Recovered/Not Resolved]
  - Nail bed inflammation [Not Recovered/Not Resolved]
  - Onychalgia [Not Recovered/Not Resolved]
  - Weight decreased [Unknown]
  - Abdominal discomfort [Recovered/Resolved]
  - Fatigue [Not Recovered/Not Resolved]
  - Frequent bowel movements [Recovered/Resolved]
  - Haemorrhoids [Not Recovered/Not Resolved]
  - Anorectal discomfort [Recovered/Resolved]
  - Pruritus generalised [Not Recovered/Not Resolved]
  - Drug ineffective [Unknown]
